FAERS Safety Report 7907967-5 (Version None)
Quarter: 2011Q4

REPORT INFORMATION
  Report Type: 
  Country: None (occurrence: None)
  Receive Date: 20111110
  Receipt Date: 20111108
  Transmission Date: 20120403
  Serious: Yes (Hospitalization, Disabling, Other)
  Sender: FDA-Public Use
  Company Number: US-MERCK-1102USA02274

PATIENT
  Age: 51 Year
  Sex: Female
  Weight: 74 kg

DRUGS (4)
  1. FOSAMAX [Suspect]
     Indication: OSTEOPOROSIS
     Route: 048
     Dates: start: 19950101, end: 20090101
  2. FOSAMAX [Suspect]
     Route: 048
     Dates: start: 20050815, end: 20100101
  3. ALENDRONATE SODIUM [Suspect]
     Indication: OSTEOPOROSIS
     Route: 048
     Dates: start: 20080301
  4. HORMONES (UNSPECIFIED) [Concomitant]
     Route: 065
     Dates: start: 19950101, end: 20010101

REACTIONS (81)
  - FEMUR FRACTURE [None]
  - OEDEMA PERIPHERAL [None]
  - ERYTHEMA [None]
  - LEFT VENTRICULAR DYSFUNCTION [None]
  - TENDON DISORDER [None]
  - WEIGHT INCREASED [None]
  - LUMBAR RADICULOPATHY [None]
  - ARTHRALGIA [None]
  - JOINT INSTABILITY [None]
  - CARDIAC FAILURE CONGESTIVE [None]
  - SYNOVIAL CYST [None]
  - HAEMORRHAGIC ANAEMIA [None]
  - UROSEPSIS [None]
  - GAIT DISTURBANCE [None]
  - ATELECTASIS [None]
  - BACK DISORDER [None]
  - TOOTH DISORDER [None]
  - SPINAL DEFORMITY [None]
  - HERPES ZOSTER [None]
  - WRIST FRACTURE [None]
  - POLLAKIURIA [None]
  - MUSCLE SPASMS [None]
  - ANORECTAL DISCOMFORT [None]
  - HYPERTENSION [None]
  - COLON ADENOMA [None]
  - ARTHRITIS [None]
  - GALLBLADDER DISORDER [None]
  - ARTHROPATHY [None]
  - BODY TEMPERATURE INCREASED [None]
  - CEREBRAL INFARCTION [None]
  - HYPERPARATHYROIDISM [None]
  - GASTROOESOPHAGEAL REFLUX DISEASE [None]
  - ABASIA [None]
  - PAIN [None]
  - IRON DEFICIENCY ANAEMIA [None]
  - ANAEMIA MACROCYTIC [None]
  - DYSURIA [None]
  - VENOUS INSUFFICIENCY [None]
  - PARANASAL SINUS HYPERSECRETION [None]
  - RESTLESS LEGS SYNDROME [None]
  - JOINT EFFUSION [None]
  - DENTAL CARIES [None]
  - CORONARY ARTERY DISEASE [None]
  - FIBROMYALGIA [None]
  - HYPOKINESIA [None]
  - INTERVERTEBRAL DISC PROTRUSION [None]
  - ROTATOR CUFF SYNDROME [None]
  - OSTEOARTHRITIS [None]
  - TREMOR [None]
  - STOMATITIS [None]
  - SPINAL OSTEOARTHRITIS [None]
  - URINARY HESITATION [None]
  - BLOOD PARATHYROID HORMONE INCREASED [None]
  - HYPERURICAEMIA [None]
  - DIARRHOEA [None]
  - DERMATITIS CONTACT [None]
  - HYPOMAGNESAEMIA [None]
  - HEMIANOPIA HOMONYMOUS [None]
  - MALNUTRITION [None]
  - EYELID DISORDER [None]
  - DYSLIPIDAEMIA [None]
  - DEPRESSION [None]
  - BRAIN MASS [None]
  - ARTERIOSCLEROSIS [None]
  - RENAL FAILURE ACUTE [None]
  - URINARY TRACT INFECTION [None]
  - GASTROINTESTINAL DISORDER [None]
  - SPINAL COLUMN STENOSIS [None]
  - VARICOSE VEIN [None]
  - PRODUCTIVE COUGH [None]
  - HYPERLIPIDAEMIA [None]
  - UPPER LIMB FRACTURE [None]
  - BLOOD CHOLESTEROL INCREASED [None]
  - ABDOMINAL WALL DISORDER [None]
  - BLOOD ALKALINE PHOSPHATASE INCREASED [None]
  - DIASTOLIC DYSFUNCTION [None]
  - GOUT [None]
  - MYOCARDIAL INFARCTION [None]
  - FALL [None]
  - VITAMIN D DEFICIENCY [None]
  - NEUROPATHY PERIPHERAL [None]
